FAERS Safety Report 15448492 (Version 1)
Quarter: 2018Q3

REPORT INFORMATION
  Report Type: Spontaneous
  Country: US (occurrence: US)
  Receive Date: 20180929
  Receipt Date: 20180929
  Transmission Date: 20181010
  Serious: No
  Sender: FDA-Public Use
  Company Number: US-TEVA-2018-US-958486

PATIENT
  Sex: Female

DRUGS (1)
  1. CLONAZEPAM. [Suspect]
     Active Substance: CLONAZEPAM
     Indication: PANIC ATTACK
     Route: 065

REACTIONS (7)
  - Drug ineffective [Unknown]
  - Impaired driving ability [Unknown]
  - Product substitution issue [Unknown]
  - Gait disturbance [Unknown]
  - Withdrawal syndrome [Unknown]
  - Muscular weakness [Unknown]
  - Panic reaction [Unknown]

NARRATIVE: CASE EVENT DATE: 201808
